FAERS Safety Report 12157097 (Version 3)
Quarter: 2017Q4

REPORT INFORMATION
  Report Type: Report from Study
  Country: BR (occurrence: BR)
  Receive Date: 20160307
  Receipt Date: 20171102
  Transmission Date: 20180320
  Serious: Yes (Hospitalization, Other)
  Sender: FDA-Public Use
  Company Number: BR-ROCHE-1721643

PATIENT
  Age: 47 Year
  Sex: Female
  Weight: 62 kg

DRUGS (11)
  1. LOSARTAN. [Concomitant]
     Active Substance: LOSARTAN
     Indication: HYPERTENSION
  2. HYDROCHLOROTHIAZIDE. [Concomitant]
     Active Substance: HYDROCHLOROTHIAZIDE
     Indication: HYPERTENSION
  3. GLIBENCLAMIDE [Concomitant]
     Active Substance: GLYBURIDE
     Indication: DIABETES MELLITUS
  4. SIMVASTATIN. [Concomitant]
     Active Substance: SIMVASTATIN
     Indication: BLOOD CHOLESTEROL ABNORMAL
  5. FLUOXETINE [Concomitant]
     Active Substance: FLUOXETINE HYDROCHLORIDE
  6. METFORMIN [Concomitant]
     Active Substance: METFORMIN HYDROCHLORIDE
     Indication: DIABETES MELLITUS
  7. ACTEMRA [Suspect]
     Active Substance: TOCILIZUMAB
     Indication: RHEUMATOID ARTHRITIS
     Dosage: LATEST INFUSION TOOK PLACE ON 19/OCT/2017
     Route: 042
     Dates: start: 20160123
  8. RIVOTRIL [Concomitant]
     Active Substance: CLONAZEPAM
     Indication: DEPRESSION
     Route: 048
  9. ALPRAZOLAM. [Concomitant]
     Active Substance: ALPRAZOLAM
  10. NIMESULIDE [Concomitant]
     Active Substance: NIMESULIDE
     Route: 048
  11. INSULIN [Concomitant]
     Active Substance: INSULIN NOS

REACTIONS (14)
  - Malaise [Not Recovered/Not Resolved]
  - Vomiting [Not Recovered/Not Resolved]
  - Pharyngitis [Recovered/Resolved]
  - Stomatitis [Not Recovered/Not Resolved]
  - Eye haemorrhage [Recovering/Resolving]
  - Weight decreased [Recovering/Resolving]
  - Thrombosis [Recovering/Resolving]
  - Abdominal distension [Not Recovered/Not Resolved]
  - Aphonia [Recovered/Resolved]
  - Intestinal haemorrhage [Recovering/Resolving]
  - Osteoarthritis [Unknown]
  - Patella fracture [Not Recovered/Not Resolved]
  - Pyrexia [Not Recovered/Not Resolved]
  - Eye irritation [Recovered/Resolved]

NARRATIVE: CASE EVENT DATE: 2017
